FAERS Safety Report 24695604 (Version 3)
Quarter: 2025Q3

REPORT INFORMATION
  Report Type: Spontaneous
  Country: US (occurrence: US)
  Receive Date: 20241204
  Receipt Date: 20250809
  Transmission Date: 20251020
  Serious: Yes (Hospitalization, Other)
  Sender: ALEXION PHARMACEUTICALS
  Company Number: US-AstraZeneca-CH-00755359AP

PATIENT
  Age: 77 Year
  Sex: Male

DRUGS (1)
  1. BYDUREON BCISE [Suspect]
     Active Substance: EXENATIDE
     Route: 065

REACTIONS (8)
  - Malignant neoplasm progression [Unknown]
  - Bladder cancer [Unknown]
  - Squamous cell carcinoma of skin [Unknown]
  - Bladder cancer recurrent [Unknown]
  - Hepatic cancer [Unknown]
  - Malignant neoplasm of spinal cord [Unknown]
  - Incorrect dose administered by device [Unknown]
  - Device leakage [Unknown]

NARRATIVE: CASE EVENT DATE: 20240301
